FAERS Safety Report 16228443 (Version 1)
Quarter: 2019Q2

REPORT INFORMATION
  Report Type: Spontaneous
  Country: US (occurrence: US)
  Receive Date: 20190423
  Receipt Date: 20190423
  Transmission Date: 20190711
  Serious: Yes (Other)
  Sender: FDA-Public Use
  Company Number: US-PURDUE PHARMA-USA-2019-0146732

PATIENT
  Age: 44 Year
  Sex: Male

DRUGS (3)
  1. PSILOCYBINE [Suspect]
     Active Substance: PSILOCYBINE
     Indication: PAIN
     Route: 065
  2. OXYCONTIN [Suspect]
     Active Substance: OXYCODONE HYDROCHLORIDE
     Indication: PAIN
     Route: 048
  3. PSILOCYBINE [Suspect]
     Active Substance: PSILOCYBINE
     Indication: STRESS

REACTIONS (6)
  - Unevaluable event [Recovering/Resolving]
  - Anxiety [Recovering/Resolving]
  - Substance abuse [Unknown]
  - Feeling abnormal [Recovering/Resolving]
  - Depression [Recovering/Resolving]
  - Stress [Recovering/Resolving]
